FAERS Safety Report 19817237 (Version 1)
Quarter: 2021Q3

REPORT INFORMATION
  Report Type: Report from Study
  Country: BR (occurrence: BR)
  Receive Date: 20210910
  Receipt Date: 20210910
  Transmission Date: 20211014
  Serious: Yes (Hospitalization)
  Sender: FDA-Public Use
  Company Number: BR-BIOGEN-2021BI01042697

PATIENT
  Age: 25 Year
  Sex: Female

DRUGS (5)
  1. OMEGA 3 [Suspect]
     Active Substance: OMEGA-3 FATTY ACIDS
     Indication: DIARRHOEA
     Route: 065
  2. OLIVE OIL [Suspect]
     Active Substance: OLIVE OIL
     Indication: DIARRHOEA
     Route: 065
  3. VITAMIN D [Concomitant]
     Active Substance: VITAMIN D NOS
     Indication: VITAMIN D INCREASED
     Route: 048
     Dates: start: 2018
  4. TECFIDERA [Suspect]
     Active Substance: DIMETHYL FUMARATE
     Indication: MULTIPLE SCLEROSIS
     Route: 048
     Dates: start: 20200106
  5. TECFIDERA [Suspect]
     Active Substance: DIMETHYL FUMARATE
     Route: 048
     Dates: start: 20200106

REACTIONS (9)
  - Lactose intolerance [Not Recovered/Not Resolved]
  - Pruritus [Not Recovered/Not Resolved]
  - Retching [Not Recovered/Not Resolved]
  - Intentional product misuse [Recovered/Resolved]
  - Abdominal pain [Not Recovered/Not Resolved]
  - Nausea [Not Recovered/Not Resolved]
  - Cholelithiasis [Recovered/Resolved]
  - Diarrhoea [Not Recovered/Not Resolved]
  - Hot flush [Not Recovered/Not Resolved]

NARRATIVE: CASE EVENT DATE: 202001
